FAERS Safety Report 8776394 (Version 5)
Quarter: 2018Q4

REPORT INFORMATION
  Report Type: Spontaneous
  Country: FR (occurrence: FR)
  Receive Date: 20120910
  Receipt Date: 20181205
  Transmission Date: 20190205
  Serious: Yes (Congenital Anomaly, Other)
  Sender: FDA-Public Use
  Company Number: FR-PFIZER INC-2012216925

PATIENT
  Sex: Female
  Weight: 2.72 kg

DRUGS (3)
  1. EFFEXOR [Suspect]
     Active Substance: VENLAFAXINE HYDROCHLORIDE
     Dosage: UNK
     Route: 064
     Dates: start: 20101230, end: 20110130
  2. DEPAKINE CHRONO [Suspect]
     Active Substance: VALPROATE SODIUM
     Dosage: 500 MG, 2X/DAY (2 TABLETS OF 500MG)
     Route: 064
     Dates: start: 20101230, end: 20110916
  3. PROZAC [Suspect]
     Active Substance: FLUOXETINE HYDROCHLORIDE
     Dosage: 20 MG, 1X/DAY
     Route: 064
     Dates: start: 20110130, end: 20110916

REACTIONS (3)
  - Polydactyly [Recovered/Resolved]
  - Maternal exposure during pregnancy [Recovered/Resolved]
  - Cardiac aneurysm [Recovered/Resolved]

NARRATIVE: CASE EVENT DATE: 20110916
